FAERS Safety Report 22212078 (Version 1)
Quarter: 2023Q2

REPORT INFORMATION
  Report Type: Spontaneous
  Country: RU (occurrence: None)
  Receive Date: 20230414
  Receipt Date: 20230414
  Transmission Date: 20230721
  Serious: Yes (Other)
  Sender: FDA-Public Use
  Company Number: RU-ROCHE-3328089

PATIENT
  Age: 54 Year
  Sex: Male

DRUGS (1)
  1. ATEZOLIZUMAB [Suspect]
     Active Substance: ATEZOLIZUMAB
     Indication: Non-small cell lung cancer metastatic
     Dosage: ON 27/FEB/2023 RECEIVED LAST DOSE
     Route: 041

REACTIONS (4)
  - Coronavirus pneumonia [Unknown]
  - Metastases to central nervous system [Unknown]
  - Dyspnoea [Unknown]
  - Cough [Unknown]
